FAERS Safety Report 7941562-7 (Version None)
Quarter: 2011Q4

REPORT INFORMATION
  Report Type: 
  Country: None (occurrence: None)
  Receive Date: 20111128
  Receipt Date: 20111117
  Transmission Date: 20120403
  Serious: Yes (Hospitalization, Other)
  Sender: FDA-Public Use
  Company Number: DE-UCBSA-038889

PATIENT
  Age: 80 Year
  Sex: Male

DRUGS (7)
  1. ANALGOSEDATION [Concomitant]
     Dates: end: 20110618
  2. FALITHROM [Concomitant]
     Route: 048
     Dates: end: 20110101
  3. NEUPRO [Suspect]
     Dosage: EITHER 2 MG OR 4 MG: STRENGTH UNKNOWN
     Route: 062
     Dates: end: 20110101
  4. L-DOPA [Concomitant]
  5. DIGITOXIN TAB [Concomitant]
     Dates: start: 20110719
  6. DIGITOXIN TAB [Concomitant]
  7. L-DOPA [Concomitant]

REACTIONS (13)
  - INTRACARDIAC THROMBUS [None]
  - DIABETES MELLITUS [None]
  - ATRIAL FIBRILLATION [None]
  - GASTRIC ULCER [None]
  - INTERNATIONAL NORMALISED RATIO ABNORMAL [None]
  - HAEMORRHAGIC ANAEMIA [None]
  - FATIGUE [None]
  - HYPERTENSION [None]
  - CEREBRAL INFARCTION [None]
  - RENAL FAILURE ACUTE [None]
  - ARTERIOSCLEROSIS [None]
  - BENIGN FAMILIAL HAEMATURIA [None]
  - CRITICAL ILLNESS POLYNEUROPATHY [None]
